FAERS Safety Report 7913808-2 (Version None)
Quarter: 2011Q4

REPORT INFORMATION
  Report Type: 
  Country: None (occurrence: None)
  Receive Date: 20111110
  Receipt Date: 20111028
  Transmission Date: 20120403
  Serious: Yes (Other)
  Sender: FDA-Public Use
  Company Number: US-006709

PATIENT
  Sex: Male
  Weight: 81.6475 kg

DRUGS (6)
  1. DEGARELIX (240 MG) [Suspect]
     Indication: PROSTATE CANCER
     Dosage: 240 MG 1X SUBCUTANEOUS
     Route: 058
     Dates: start: 20110415, end: 20110415
  2. DEGARELIX (80 MG) [Suspect]
     Indication: PROSTATE CANCER
     Dosage: 80 MG 1X/MONTH SUBCUTANEOUS
     Route: 058
     Dates: start: 20110513, end: 20110824
  3. AMLODIPINE [Concomitant]
  4. COLCHICINE [Concomitant]
  5. SIMVASTATIN [Concomitant]
  6. VIAGRA [Concomitant]

REACTIONS (3)
  - CEREBRAL SMALL VESSEL ISCHAEMIC DISEASE [None]
  - DEAFNESS [None]
  - HOT FLUSH [None]
